FAERS Safety Report 7993354-0 (Version None)
Quarter: 2011Q4

REPORT INFORMATION
  Report Type: 
  Country: None (occurrence: None)
  Receive Date: 20111219
  Receipt Date: 20110923
  Transmission Date: 20120403
  Serious: No
  Sender: FDA-Public Use
  Company Number: US-ASTRAZENECA-2011SE57727

PATIENT
  Age: 73 Year
  Sex: Female

DRUGS (3)
  1. CRESTOR [Suspect]
     Route: 048
  2. PLAVIX [Concomitant]
  3. PRAVACHOL [Concomitant]

REACTIONS (5)
  - DRUG INTOLERANCE [None]
  - BONE PAIN [None]
  - INFLUENZA [None]
  - MYALGIA [None]
  - DRUG HYPERSENSITIVITY [None]
